FAERS Safety Report 18498178 (Version 2)
Quarter: 2021Q1

REPORT INFORMATION
  Report Type: Report from Study
  Country: None (occurrence: US)
  Receive Date: 20201113
  Receipt Date: 20210211
  Transmission Date: 20210419
  Serious: Yes (Other)
  Sender: FDA-Public Use
  Company Number: US-ABBVIE-20K-163-3644505-00

PATIENT
  Age: 50 Year
  Sex: Female
  Weight: 108.96 kg

DRUGS (3)
  1. TRIAMTERENE AND HCTZ [Concomitant]
     Indication: HYPERTENSION
  2. HUMIRA [Suspect]
     Active Substance: ADALIMUMAB
     Indication: PSORIATIC ARTHROPATHY
     Route: 058
     Dates: start: 2017
  3. SULFASALAZINE. [Concomitant]
     Active Substance: SULFASALAZINE
     Indication: PSORIATIC ARTHROPATHY

REACTIONS (7)
  - Incorrect dose administered [Unknown]
  - Injection site haemorrhage [Recovered/Resolved]
  - Pain [Not Recovered/Not Resolved]
  - Supraventricular tachycardia [Recovering/Resolving]
  - Incorrect dose administered [Recovered/Resolved]
  - Wrong technique in product usage process [Unknown]
  - Wrong technique in product usage process [Recovered/Resolved]

NARRATIVE: CASE EVENT DATE: 2018
